FAERS Safety Report 4578048-6 (Version None)
Quarter: 2005Q1

REPORT INFORMATION
  Report Type: 
  Country: None (occurrence: None)
  Receive Date: 20050209
  Receipt Date: 20050119
  Transmission Date: 20050727
  Serious: Yes (Other)
  Sender: FDA-Public Use
  Company Number: CA_050107658

PATIENT
  Age: 64 Year
  Sex: Male
  Weight: 79 kg

DRUGS (4)
  1. KEFZOL [Suspect]
     Dates: start: 20000705, end: 20000710
  2. FERROUS GLUCONATE [Concomitant]
  3. QUININE SULFATE [Concomitant]
  4. EPOETIN ALFA [Concomitant]

REACTIONS (1)
  - NO ADVERSE DRUG EFFECT [None]
